FAERS Safety Report 5609228-6 (Version None)
Quarter: 2008Q1

REPORT INFORMATION
  Report Type: 
  Country: None (occurrence: None)
  Receive Date: 20080129
  Receipt Date: 20080129
  Transmission Date: 20080703
  Serious: Yes (Hospitalization)
  Sender: FDA-Public Use
  Company Number: None

PATIENT
  Age: 45 Year
  Sex: Female
  Weight: 131.5431 kg

DRUGS (3)
  1. LEVAQUIN [Suspect]
     Indication: BRONCHITIS
     Dosage: ONE ONCE OR TWICE PO; THROUGHOUT THESE YRS
     Route: 048
     Dates: start: 20000110, end: 20080101
  2. LEVAQUIN [Suspect]
     Indication: PNEUMONIA
     Dosage: ONE ONCE OR TWICE PO; THROUGHOUT THESE YRS
     Route: 048
     Dates: start: 20000110, end: 20080101
  3. LEVAQUIN [Suspect]
     Indication: SINUSITIS
     Dosage: ONE ONCE OR TWICE PO; THROUGHOUT THESE YRS
     Route: 048
     Dates: start: 20000110, end: 20080101

REACTIONS (5)
  - GAIT DISTURBANCE [None]
  - INFLAMMATION [None]
  - INJURY [None]
  - STRESS [None]
  - TENDON RUPTURE [None]
